FAERS Safety Report 10726931 (Version 1)
Quarter: 2015Q1

REPORT INFORMATION
  Report Type: Report from Study
  Country: JP (occurrence: JP)
  Receive Date: 20150121
  Receipt Date: 20150121
  Transmission Date: 20150721
  Serious: Yes (Death)
  Sender: FDA-Public Use
  Company Number: JP-SA-2015SA005249

PATIENT
  Age: 70 Year
  Sex: Male

DRUGS (3)
  1. CARBOPLATIN. [Suspect]
     Active Substance: CARBOPLATIN
     Indication: PROSTATE CANCER
     Dosage: AUC6 EVERY 4 WEEKS
     Route: 042
     Dates: start: 20080626, end: 20100108
  2. ESTRAMUSTINE PHOSPHATE [Suspect]
     Active Substance: ESTRAMUSTINE PHOSPHATE
     Indication: PROSTATE CANCER
     Route: 048
     Dates: start: 20080626, end: 20100108
  3. TAXOTERE [Suspect]
     Active Substance: DOCETAXEL
     Indication: PROSTATE CANCER
     Route: 042
     Dates: start: 20080626, end: 20100108

REACTIONS (2)
  - Brain natriuretic peptide increased [Fatal]
  - Cardiac failure [Fatal]

NARRATIVE: CASE EVENT DATE: 20100415
